FAERS Safety Report 23672314 (Version 1)
Quarter: 2024Q1

REPORT INFORMATION
  Report Type: Report from Study
  Country: CA (occurrence: None)
  Receive Date: 20240326
  Receipt Date: 20240326
  Transmission Date: 20240410
  Serious: Yes (Hospitalization, Other)
  Sender: FDA-Public Use
  Company Number: CA-PFIZER INC-202400068672

PATIENT
  Age: 46 Year
  Sex: Female

DRUGS (13)
  1. METHOTREXATE [Suspect]
     Active Substance: METHOTREXATE
     Indication: Product used for unknown indication
     Dosage: UNK
  2. METHOTREXATE [Suspect]
     Active Substance: METHOTREXATE
     Dosage: UNK
  3. ACTEMRA [Suspect]
     Active Substance: TOCILIZUMAB
     Indication: Rheumatoid arthritis
     Dosage: 208 MG, 1 EVERY 4 WEEKS
  4. ACTEMRA [Suspect]
     Active Substance: TOCILIZUMAB
  5. PREDNISONE [Suspect]
     Active Substance: PREDNISONE
     Indication: Product used for unknown indication
  6. COD LIVER OIL [Concomitant]
     Active Substance: COD LIVER OIL
     Dosage: UNK
  7. HUMIRA [Concomitant]
     Active Substance: ADALIMUMAB
     Indication: Rheumatoid arthritis
     Dosage: UNK
  8. IBUPROFEN [Concomitant]
     Active Substance: IBUPROFEN
     Dosage: UNK
  9. IRON [Concomitant]
     Active Substance: IRON
     Dosage: UNK
  10. MAGNESIUM [Concomitant]
     Active Substance: MAGNESIUM
     Dosage: UNK
  11. PANTOPRAZOLE [Concomitant]
     Active Substance: PANTOPRAZOLE
     Dosage: UNK
  12. RINVOQ [Concomitant]
     Active Substance: UPADACITINIB
     Dosage: UNK
  13. TYLENOL [Concomitant]
     Active Substance: ACETAMINOPHEN
     Dosage: UNK

REACTIONS (44)
  - Drug ineffective [Not Recovered/Not Resolved]
  - Anxiety [Not Recovered/Not Resolved]
  - Arterial disorder [Not Recovered/Not Resolved]
  - Arthralgia [Not Recovered/Not Resolved]
  - Blood creatinine abnormal [Not Recovered/Not Resolved]
  - Blood test abnormal [Not Recovered/Not Resolved]
  - Bone erosion [Not Recovered/Not Resolved]
  - C-reactive protein abnormal [Not Recovered/Not Resolved]
  - COVID-19 [Not Recovered/Not Resolved]
  - Dizziness [Not Recovered/Not Resolved]
  - Dysstasia [Not Recovered/Not Resolved]
  - Elbow deformity [Not Recovered/Not Resolved]
  - Fatigue [Not Recovered/Not Resolved]
  - Finger deformity [Not Recovered/Not Resolved]
  - Foot deformity [Not Recovered/Not Resolved]
  - Gait disturbance [Not Recovered/Not Resolved]
  - Gastrointestinal disorder [Not Recovered/Not Resolved]
  - Gingival disorder [Not Recovered/Not Resolved]
  - Headache [Not Recovered/Not Resolved]
  - Heart rate increased [Not Recovered/Not Resolved]
  - Heavy menstrual bleeding [Not Recovered/Not Resolved]
  - Joint dislocation [Not Recovered/Not Resolved]
  - Joint effusion [Not Recovered/Not Resolved]
  - Joint range of motion decreased [Not Recovered/Not Resolved]
  - Joint stiffness [Not Recovered/Not Resolved]
  - Joint swelling [Not Recovered/Not Resolved]
  - Malaise [Not Recovered/Not Resolved]
  - Mobility decreased [Not Recovered/Not Resolved]
  - Movement disorder [Not Recovered/Not Resolved]
  - Anxiety [Not Recovered/Not Resolved]
  - Muscle spasms [Not Recovered/Not Resolved]
  - Musculoskeletal stiffness [Not Recovered/Not Resolved]
  - Nervous system disorder [Not Recovered/Not Resolved]
  - Osteoarthritis [Not Recovered/Not Resolved]
  - Pain [Not Recovered/Not Resolved]
  - Pain in extremity [Not Recovered/Not Resolved]
  - Palpitations [Not Recovered/Not Resolved]
  - Peripheral swelling [Not Recovered/Not Resolved]
  - Red blood cell sedimentation rate decreased [Not Recovered/Not Resolved]
  - Rheumatoid arthritis [Not Recovered/Not Resolved]
  - Skin discolouration [Not Recovered/Not Resolved]
  - Tooth disorder [Not Recovered/Not Resolved]
  - Wrist deformity [Not Recovered/Not Resolved]
  - Muscle atrophy [Not Recovered/Not Resolved]
